FAERS Safety Report 7056379-8 (Version None)
Quarter: 2010Q4

REPORT INFORMATION
  Report Type: 
  Country: None (occurrence: None)
  Receive Date: 20101021
  Receipt Date: 20100921
  Transmission Date: 20110411
  Serious: Yes (Other)
  Sender: FDA-Public Use
  Company Number: PHHY2010BR66002

PATIENT
  Age: 67 Year
  Sex: Female
  Weight: 94 kg

DRUGS (10)
  1. HYDROCHLOROTHIAZIDE [Suspect]
     Dosage: 40 MG
  2. VALSARTAN [Suspect]
     Dosage: 320
     Dates: start: 20091001
  3. ALISKIREN [Suspect]
     Dosage: 150 MG
     Dates: start: 20091001
  4. ALISKIREN [Suspect]
     Dosage: 300 MG
     Dates: start: 20091101
  5. AMLODIPINE [Concomitant]
     Dosage: 20 MG
  6. SIMVASTATIN [Concomitant]
     Dosage: 40 MG
  7. ASPIRIN [Concomitant]
     Dosage: 100 MG
  8. CLOPIDOGREL [Concomitant]
     Dosage: 75 MG
  9. FUROSEMIDE [Concomitant]
     Dosage: 80 MG, QD
  10. BISOPROLOL [Concomitant]
     Dosage: 5 MG

REACTIONS (4)
  - BLOOD PRESSURE INADEQUATELY CONTROLLED [None]
  - MYOCARDIAL FIBROSIS [None]
  - RAPID EYE MOVEMENTS SLEEP ABNORMAL [None]
  - SLEEP APNOEA SYNDROME [None]
